FAERS Safety Report 17200661 (Version 1)
Quarter: 2019Q4

REPORT INFORMATION
  Report Type: Spontaneous
  Country: DE (occurrence: DE)
  Receive Date: 20191226
  Receipt Date: 20191226
  Transmission Date: 20200122
  Serious: Yes (Death, Other)
  Sender: FDA-Public Use
  Company Number: DE-ACCORD-167335

PATIENT
  Age: 69 Year

DRUGS (5)
  1. CISPLATIN. [Suspect]
     Active Substance: CISPLATIN
     Indication: LUNG NEOPLASM MALIGNANT
     Route: 065
     Dates: end: 20190704
  2. DOCETAXEL. [Suspect]
     Active Substance: DOCETAXEL
     Indication: LUNG NEOPLASM MALIGNANT
     Route: 065
     Dates: start: 20190704
  3. PEMETREXED. [Suspect]
     Active Substance: PEMETREXED
     Indication: LUNG NEOPLASM MALIGNANT
     Route: 065
     Dates: end: 20190704
  4. PEMBROLIZUMAB. [Suspect]
     Active Substance: PEMBROLIZUMAB
     Indication: LUNG NEOPLASM MALIGNANT
     Dosage: UNK
     Route: 065
     Dates: end: 20190704
  5. NINTEDANIB [Suspect]
     Active Substance: NINTEDANIB
     Indication: LUNG NEOPLASM MALIGNANT
     Dosage: UNK
     Route: 065
     Dates: start: 20190704

REACTIONS (2)
  - Adverse event [Unknown]
  - Death [Fatal]

NARRATIVE: CASE EVENT DATE: 2019
